FAERS Safety Report 5027634-8 (Version None)
Quarter: 2006Q2

REPORT INFORMATION
  Report Type: 
  Country: None (occurrence: None)
  Receive Date: 20060428
  Receipt Date: 20060113
  Transmission Date: 20061013
  Serious: No
  Sender: FDA-Public Use
  Company Number: COT_0378_2006

PATIENT
  Age: 43 Year
  Sex: Male
  Weight: 65.8 kg

DRUGS (9)
  1. VENTAVIS [Suspect]
     Indication: PULMONARY HYPERTENSION
     Dosage: 5 MCG 6XD IH
     Dates: start: 20051217, end: 20060106
  2. TRACLEER [Concomitant]
  3. KEPPRA [Concomitant]
  4. LASIX [Concomitant]
  5. DEPAKOTE [Concomitant]
  6. PROZAC [Concomitant]
  7. COUMADIN [Concomitant]
  8. AMIODARONE HCL [Concomitant]
  9. LOPRESSOR [Concomitant]

REACTIONS (5)
  - CHEST PAIN [None]
  - DIZZINESS [None]
  - FATIGUE [None]
  - HEADACHE [None]
  - PAIN IN EXTREMITY [None]
